FAERS Safety Report 26141775 (Version 3)
Quarter: 2025Q4

REPORT INFORMATION
  Report Type: Spontaneous
  Country: US (occurrence: US)
  Receive Date: 20251210
  Receipt Date: 20251222
  Transmission Date: 20260118
  Serious: Yes (Hospitalization, Other)
  Sender: PFIZER
  Company Number: US-PFIZER INC-PV202500143357

PATIENT
  Age: 70 Year
  Sex: Female

DRUGS (5)
  1. METHYLPREDNISOLONE SODIUM SUCCINATE [Interacting]
     Active Substance: METHYLPREDNISOLONE SODIUM SUCCINATE
     Indication: Transplant rejection
     Dosage: UNK (HIGH DOSE; THREE DOSES)
     Route: 042
  2. POSACONAZOLE [Interacting]
     Active Substance: POSACONAZOLE
     Indication: Bronchopulmonary aspergillosis
     Dosage: UNK
  3. FUROSEMIDE [Concomitant]
     Active Substance: FUROSEMIDE
     Indication: Hypervolaemia
     Dosage: UNK; ONE DOSE
  4. PREDNISONE [Concomitant]
     Active Substance: PREDNISONE
     Dosage: UNK
     Route: 048
  5. ISAVUCONAZONIUM [Concomitant]
     Active Substance: ISAVUCONAZONIUM
     Indication: Bronchopulmonary aspergillosis
     Dosage: UNK

REACTIONS (8)
  - Pseudoaldosteronism [Recovered/Resolved]
  - Condition aggravated [Recovered/Resolved]
  - Fatigue [Unknown]
  - Decreased appetite [Unknown]
  - Metabolic alkalosis [Recovered/Resolved]
  - Hypertension [Recovered/Resolved]
  - Inhibitory drug interaction [Recovered/Resolved]
  - Off label use [Unknown]
